FAERS Safety Report 6236643-2 (Version None)
Quarter: 2009Q2

REPORT INFORMATION
  Report Type: 
  Country: None (occurrence: None)
  Receive Date: 20090619
  Receipt Date: 20081024
  Transmission Date: 20091009
  Serious: No
  Sender: FDA-Public Use
  Company Number: US-ASTRAZENECA-2008UW23893

PATIENT
  Age: 87 Year
  Sex: Female
  Weight: 70.8 kg

DRUGS (4)
  1. ATACAND [Suspect]
     Indication: HYPERTENSION
     Route: 048
  2. ATACAND [Suspect]
     Route: 048
  3. ATENOLOL [Concomitant]
  4. TYLENOL (CAPLET) [Concomitant]

REACTIONS (6)
  - CHOKING [None]
  - DYSPHAGIA [None]
  - FATIGUE [None]
  - MENTAL IMPAIRMENT [None]
  - MYALGIA [None]
  - THROAT TIGHTNESS [None]
